FAERS Safety Report 23482581 (Version 1)
Quarter: 2024Q1

REPORT INFORMATION
  Report Type: Spontaneous
  Country: FR (occurrence: FR)
  Receive Date: 20240205
  Receipt Date: 20240205
  Transmission Date: 20240410
  Serious: Yes (Hospitalization, Other)
  Sender: FDA-Public Use
  Company Number: FR-JNJFOC-20240201061

PATIENT
  Age: 55 Year
  Sex: Female

DRUGS (14)
  1. MINOXIDIL [Suspect]
     Active Substance: MINOXIDIL
     Indication: Diffuse alopecia
     Route: 065
  2. MINOXIDIL [Suspect]
     Active Substance: MINOXIDIL
     Route: 065
     Dates: start: 19961112
  3. CYPROTERONE [Suspect]
     Active Substance: CYPROTERONE
     Indication: Androgenetic alopecia
     Route: 065
     Dates: start: 2002, end: 2020
  4. MIRENA [Suspect]
     Active Substance: LEVONORGESTREL
     Indication: Product used for unknown indication
     Dosage: PROGESTIN-RELEASING 20 G/24 HOURS LEVONORGESTREL IUD
     Route: 065
     Dates: start: 20010530
  5. CYPROTERONE ACETATE [Suspect]
     Active Substance: CYPROTERONE ACETATE
     Indication: Androgenetic alopecia
     Dosage: DOSAGE TEXT: ONE DOSAGE FORM DAILY 21 DAYS ON 28 DAYS
     Route: 065
     Dates: start: 20020717, end: 2020
  6. CYPROTERONE ACETATE [Suspect]
     Active Substance: CYPROTERONE ACETATE
     Indication: Product used for unknown indication
     Route: 065
     Dates: start: 201909, end: 2020
  7. CYPROTERONE ACETATE [Suspect]
     Active Substance: CYPROTERONE ACETATE
     Route: 065
     Dates: start: 2002, end: 2019
  8. CYPROTERONE [Suspect]
     Active Substance: CYPROTERONE
     Indication: Product used for unknown indication
     Route: 065
     Dates: start: 2016, end: 20191030
  9. CYPROTERONE [Suspect]
     Active Substance: CYPROTERONE
     Dosage: ACETATE DE TEVA
     Route: 065
     Dates: start: 2016, end: 20191030
  10. CYPROTERONE ACETATE [Suspect]
     Active Substance: CYPROTERONE ACETATE
     Indication: Androgenetic alopecia
     Route: 065
     Dates: start: 2002, end: 2020
  11. METFORMIN HYDROCHLORIDE [Concomitant]
     Active Substance: METFORMIN HYDROCHLORIDE
     Indication: Type 2 diabetes mellitus
     Dosage: 1 TABLET/DAY
     Route: 065
  12. FENOFIBRATE [Concomitant]
     Active Substance: FENOFIBRATE
     Indication: Dyslipidaemia
     Dosage: 1 TABLET/DAY
     Route: 065
  13. AMITRIPTYLINE HYDROCHLORIDE [Concomitant]
     Active Substance: AMITRIPTYLINE HYDROCHLORIDE
     Indication: Product used for unknown indication
     Dosage: 15 TO 18 DROPS/EVENING
     Route: 065
  14. MESTINON [Concomitant]
     Active Substance: PYRIDOSTIGMINE BROMIDE
     Indication: Irritable bowel syndrome
     Route: 065

REACTIONS (15)
  - Meningioma [Recovering/Resolving]
  - Osteoma [Recovering/Resolving]
  - Memory impairment [Unknown]
  - Neuralgia [Unknown]
  - Aphasia [Unknown]
  - Taste disorder [Unknown]
  - Spinal pain [Recovering/Resolving]
  - Anosmia [Recovering/Resolving]
  - Anxiety [Unknown]
  - Urinary incontinence [Unknown]
  - Weight decreased [Unknown]
  - Affect lability [Unknown]
  - Off label use [Unknown]
  - Fatigue [Recovering/Resolving]
  - Headache [Recovering/Resolving]
